FAERS Safety Report 6642252-3 (Version None)
Quarter: 2010Q1

REPORT INFORMATION
  Report Type: 
  Country: None (occurrence: None)
  Receive Date: 20100319
  Receipt Date: 20100309
  Transmission Date: 20100710
  Serious: Yes (Death, Life-Threatening, Hospitalization)
  Sender: FDA-Public Use
  Company Number: JP-JNJFOC-20100209299

PATIENT
  Sex: Female
  Weight: 54 kg

DRUGS (11)
  1. REMICADE [Suspect]
     Indication: RHEUMATOID ARTHRITIS
     Route: 042
  2. REMICADE [Suspect]
     Route: 042
  3. METHOTREXATE [Suspect]
     Indication: RHEUMATOID ARTHRITIS
     Route: 048
  4. PREDONINE [Suspect]
     Indication: RHEUMATOID ARTHRITIS
     Route: 048
  5. FOLIC ACID [Concomitant]
     Indication: PROPHYLAXIS
     Route: 048
  6. ITRIZOLE [Concomitant]
     Indication: ONYCHOMYCOSIS
     Route: 048
  7. LOXONIN [Concomitant]
     Indication: RHEUMATOID ARTHRITIS
     Route: 048
  8. ZANTAC [Concomitant]
     Indication: PROPHYLAXIS
     Route: 048
  9. MIRADOL (SULPIRIDE) [Concomitant]
     Indication: PROPHYLAXIS
     Route: 048
  10. ROCALTROL [Concomitant]
     Indication: OSTEOPOROSIS
     Route: 048
  11. BONALON [Concomitant]
     Indication: OSTEOPOROSIS
     Route: 048

REACTIONS (5)
  - DISSEMINATED INTRAVASCULAR COAGULATION [None]
  - MULTI-ORGAN FAILURE [None]
  - PNEUMOCYSTIS JIROVECI PNEUMONIA [None]
  - PNEUMONIA BACTERIAL [None]
  - PNEUMONIA CYTOMEGALOVIRAL [None]
